FAERS Safety Report 14658729 (Version 1)
Quarter: 2018Q1

REPORT INFORMATION
  Report Type: Report from Study
  Country: BR (occurrence: BR)
  Receive Date: 20180320
  Receipt Date: 20180320
  Transmission Date: 20180509
  Serious: Yes (Hospitalization)
  Sender: FDA-Public Use
  Company Number: PHHY2018BR045168

PATIENT
  Age: 96 Year
  Sex: Female

DRUGS (3)
  1. TRAMAL [Concomitant]
     Active Substance: TRAMADOL
     Indication: PRODUCT USED FOR UNKNOWN INDICATION
     Route: 065
  2. EXELON PATCH [Suspect]
     Active Substance: RIVASTIGMINE
     Indication: DELIRIUM
     Dosage: UNK
     Route: 062
  3. MORPHINE [Concomitant]
     Active Substance: MORPHINE
     Indication: PRODUCT USED FOR UNKNOWN INDICATION
     Route: 065

REACTIONS (5)
  - Pain [Recovering/Resolving]
  - Peripheral vascular disorder [Recovering/Resolving]
  - Wound [Recovering/Resolving]
  - Product use in unapproved indication [Unknown]
  - Depressed mood [Unknown]
